FAERS Safety Report 4554379-0 (Version None)
Quarter: 2004Q4

REPORT INFORMATION
  Report Type: 
  Country: None (occurrence: None)
  Receive Date: 20041222
  Receipt Date: 20040901
  Transmission Date: 20050328
  Serious: No
  Sender: FDA-Public Use
  Company Number: 208573

PATIENT
  Age: 74 Year
  Sex: Female
  Weight: 48.5 kg

DRUGS (5)
  1. AVASTIN [Suspect]
     Indication: COLORECTAL CANCER METASTATIC
     Dosage: 250 MG, Q2W, INTRAVENOUS
     Route: 042
     Dates: start: 20040805
  2. LEUCOVORIN CALCIUM [Concomitant]
  3. FLUOROURACIL [Concomitant]
  4. CAMPTOSAR [Concomitant]
  5. NEUPOGEN [Concomitant]

REACTIONS (1)
  - NEUTROPENIA [None]
